FAERS Safety Report 14999848 (Version 1)
Quarter: 2018Q2

REPORT INFORMATION
  Report Type: Spontaneous
  Country: US (occurrence: US)
  Receive Date: 20180523
  Receipt Date: 20180523
  Transmission Date: 20180711
  Serious: Yes (Disabling)
  Sender: FDA-Public Use
  Company Number: None

PATIENT
  Age: 39 Year
  Sex: Female
  Weight: 146.25 kg

DRUGS (1)
  1. XYZAL [Suspect]
     Active Substance: LEVOCETIRIZINE DIHYDROCHLORIDE
     Indication: MULTIPLE ALLERGIES
     Route: 048
     Dates: start: 20180521, end: 20180523

REACTIONS (4)
  - Muscle spasms [None]
  - Musculoskeletal disorder [None]
  - Muscle disorder [None]
  - Joint lock [None]

NARRATIVE: CASE EVENT DATE: 20180523
